FAERS Safety Report 8923274 (Version 4)
Quarter: 2013Q3

REPORT INFORMATION
  Report Type: Report from Study
  Country: CN (occurrence: CN)
  Receive Date: 20121123
  Receipt Date: 20130926
  Transmission Date: 20140515
  Serious: Yes (Hospitalization)
  Sender: FDA-Public Use
  Company Number: CN-JNJFOC-20121108327

PATIENT
  Age: 32 Year
  Sex: Female
  Weight: 77.5 kg

DRUGS (4)
  1. PALIPERIDONE PALMITATE [Suspect]
     Indication: SCHIZOPHRENIA
     Route: 030
     Dates: start: 20120822
  2. PALIPERIDONE PALMITATE [Suspect]
     Indication: SCHIZOPHRENIA
     Route: 030
     Dates: start: 20121024
  3. PALIPERIDONE PALMITATE [Suspect]
     Indication: SCHIZOPHRENIA
     Route: 030
  4. QING KAI LING (TRADITIONAL CHINESE MEDICINE) [Concomitant]
     Indication: NASOPHARYNGITIS
     Route: 048
     Dates: start: 20121022

REACTIONS (1)
  - Schizophrenia [Recovered/Resolved]
